FAERS Safety Report 20526124 (Version 2)
Quarter: 2022Q1

REPORT INFORMATION
  Report Type: Spontaneous
  Country: GB (occurrence: GB)
  Receive Date: 20220228
  Receipt Date: 20220304
  Transmission Date: 20220423
  Serious: Yes (Hospitalization, Other)
  Sender: FDA-Public Use
  Company Number: GB-MHRA-MED-202202131155165130-HPCXZ

PATIENT
  Age: 41 Year
  Sex: Female
  Weight: 130 kg

DRUGS (8)
  1. SULFASALAZINE [Suspect]
     Active Substance: SULFASALAZINE
     Dosage: UNK
  2. ASPIRIN [Suspect]
     Active Substance: ASPIRIN
     Dosage: UNK
  3. CAMPHOR [Suspect]
     Active Substance: CAMPHOR
     Dosage: UNK
  4. METHYL SALICYLATE [Suspect]
     Active Substance: METHYL SALICYLATE
     Dosage: UNK
  5. LEVOMENTHOL [Suspect]
     Active Substance: LEVOMENTHOL
     Dosage: UNK
  6. RACEMENTHOL [Suspect]
     Active Substance: RACEMENTHOL
     Dosage: UNK
  7. PREDNISOLONE [Concomitant]
     Active Substance: PREDNISOLONE
  8. FEXOFENADINE [Concomitant]
     Active Substance: FEXOFENADINE HYDROCHLORIDE

REACTIONS (10)
  - Drug reaction with eosinophilia and systemic symptoms [Recovering/Resolving]
  - Liver injury [Recovering/Resolving]
  - Eye swelling [Recovered/Resolved]
  - Swelling face [Recovered/Resolved]
  - Lip ulceration [Recovered/Resolved]
  - Urinary tract infection [Recovered/Resolved]
  - Heart rate increased [Not Recovered/Not Resolved]
  - Pyrexia [Unknown]
  - Cough [Unknown]
  - Lymphadenopathy [Unknown]

NARRATIVE: CASE EVENT DATE: 20220117
